FAERS Safety Report 23585107 (Version 1)
Quarter: 2024Q1

REPORT INFORMATION
  Report Type: Other
  Country: DE (occurrence: None)
  Receive Date: 20240301
  Receipt Date: 20240301
  Transmission Date: 20240409
  Serious: Yes (Other)
  Sender: FDA-Public Use
  Company Number: DE-ROCHE-2735490

PATIENT
  Age: 44 Year
  Sex: Male

DRUGS (10)
  1. OCREVUS [Suspect]
     Active Substance: OCRELIZUMAB
     Indication: Primary progressive multiple sclerosis
     Dosage: FIRST INITIAL DOSE 15/DEC/2020, THEN 600 MG EVERY 181 DAYS ON 15/DEC/2020
     Route: 042
     Dates: start: 20201215
  2. OCREVUS [Suspect]
     Active Substance: OCRELIZUMAB
     Route: 042
     Dates: start: 20210722
  3. CORTISONE [Suspect]
     Active Substance: CORTISONE
     Indication: Premedication
     Route: 065
     Dates: start: 20201215
  4. CORTISONE [Suspect]
     Active Substance: CORTISONE
     Route: 065
     Dates: start: 20201229
  5. TAMSULOSIN [Suspect]
     Active Substance: TAMSULOSIN
     Indication: Micturition disorder
     Dosage: 1-0-0
     Route: 065
  6. LACOSAMIDE [Concomitant]
     Active Substance: LACOSAMIDE
     Dosage: IN THE EVENING
  7. DICLOFENAC [Concomitant]
     Active Substance: DICLOFENAC
  8. CHOLECALCIFEROL [Concomitant]
     Active Substance: CHOLECALCIFEROL
  9. TAMSULOSIN [Concomitant]
     Active Substance: TAMSULOSIN
  10. DORZOLAMIDE [Concomitant]
     Active Substance: DORZOLAMIDE

REACTIONS (18)
  - Multiple sclerosis [Not Recovered/Not Resolved]
  - Paraesthesia [Not Recovered/Not Resolved]
  - Fall [Unknown]
  - Restlessness [Recovered/Resolved]
  - Muscular weakness [Not Recovered/Not Resolved]
  - Visual impairment [Not Recovered/Not Resolved]
  - Micturition disorder [Recovering/Resolving]
  - Erectile dysfunction [Not Recovered/Not Resolved]
  - Muscle spasms [Recovered/Resolved]
  - Asthenia [Not Recovered/Not Resolved]
  - Constipation [Recovered/Resolved]
  - Sleep apnoea syndrome [Recovering/Resolving]
  - Emotional disorder [Recovered/Resolved]
  - Memory impairment [Not Recovered/Not Resolved]
  - Fluid retention [Recovered/Resolved]
  - Pain in extremity [Recovered/Resolved]
  - Periodontitis [Not Recovered/Not Resolved]
  - Influenza [Recovered/Resolved]

NARRATIVE: CASE EVENT DATE: 20201215
